FAERS Safety Report 20249334 (Version 2)
Quarter: 2022Q1

REPORT INFORMATION
  Report Type: Report from Study
  Country: GB (occurrence: GB)
  Receive Date: 20211229
  Receipt Date: 20220125
  Transmission Date: 20220423
  Serious: Yes (Other)
  Sender: FDA-Public Use
  Company Number: GB-ROCHE-2123912

PATIENT
  Age: 61 Year
  Sex: Female

DRUGS (19)
  1. DOCETAXEL [Suspect]
     Active Substance: DOCETAXEL
     Indication: Breast cancer metastatic
     Route: 042
     Dates: start: 20150507, end: 20150820
  2. PERTUZUMAB [Suspect]
     Active Substance: PERTUZUMAB
     Indication: Breast cancer metastatic
     Route: 042
     Dates: start: 20150528, end: 201606
  3. PERTUZUMAB [Suspect]
     Active Substance: PERTUZUMAB
     Dosage: 840 MILLIGRAM DAILY; LOADING DOSE
     Route: 042
     Dates: start: 20150506, end: 20150506
  4. TRASTUZUMAB [Suspect]
     Active Substance: TRASTUZUMAB
     Indication: Breast cancer metastatic
     Route: 042
     Dates: start: 20150528, end: 201606
  5. TRASTUZUMAB [Suspect]
     Active Substance: TRASTUZUMAB
     Dosage: 651 MILLIGRAM DAILY; LOADING DOSE
     Route: 042
     Dates: start: 20150507, end: 20150507
  6. ADO-TRASTUZUMAB EMTANSINE [Suspect]
     Active Substance: ADO-TRASTUZUMAB EMTANSINE
     Indication: Breast cancer metastatic
     Route: 042
     Dates: start: 20161215, end: 20170608
  7. ERIBULIN MESYLATE [Suspect]
     Active Substance: ERIBULIN MESYLATE
     Indication: Breast cancer metastatic
     Dosage: 1.23MG/M2
     Route: 042
     Dates: start: 20171024, end: 20180614
  8. CLARITHROMYCIN [Concomitant]
     Active Substance: CLARITHROMYCIN
     Indication: Cellulitis
     Dosage: 500 MILLIGRAM DAILY;
     Route: 048
     Dates: start: 20160125, end: 20160130
  9. CLARITHROMYCIN [Concomitant]
     Active Substance: CLARITHROMYCIN
     Dosage: 1000 MILLIGRAM DAILY;
     Route: 048
     Dates: start: 20160121, end: 20160125
  10. DALTEPARIN [Concomitant]
     Active Substance: DALTEPARIN
     Dosage: 18000IU
     Route: 058
     Dates: start: 20160427, end: 20160505
  11. DERMOL [Concomitant]
     Active Substance: BENZALKONIUM CHLORIDE\CHLORHEXIDINE HYDROCHLORIDE\ISOPROPYL MYRISTATE\PARAFFIN
     Indication: Cellulitis
     Route: 061
     Dates: start: 20160125, end: 2016
  12. DEXAMETHASONE [Concomitant]
     Active Substance: DEXAMETHASONE
     Dosage: 1 MILLIGRAM DAILY;
     Route: 048
     Dates: start: 20150322, end: 201602
  13. EPILIM [Concomitant]
     Active Substance: VALPROATE SODIUM
     Dosage: 600 MILLIGRAM DAILY;
     Route: 048
     Dates: start: 20150322
  14. FLUCLOXACILLIN [Concomitant]
     Active Substance: FLUCLOXACILLIN
     Indication: Oedema
     Dosage: 2000 MILLIGRAM DAILY;
     Route: 048
     Dates: start: 201603, end: 20160403
  15. FUROSEMIDE [Concomitant]
     Active Substance: FUROSEMIDE
     Dosage: 40 MILLIGRAM DAILY;
     Route: 048
     Dates: end: 201604
  16. FUROSEMIDE [Concomitant]
     Active Substance: FUROSEMIDE
     Dosage: 120 MILLIGRAM DAILY;
     Route: 048
     Dates: start: 201604
  17. HYDROCORTISONE [Concomitant]
     Active Substance: HYDROCORTISONE
     Dosage: 15 MILLIGRAM DAILY;
     Route: 048
     Dates: start: 201603
  18. PIPERACILLIN SODIUM\TAZOBACTAM SODIUM [Concomitant]
     Active Substance: PIPERACILLIN SODIUM\TAZOBACTAM SODIUM
     Indication: Cellulitis
     Dosage: 13.5 GRAM DAILY;
     Route: 042
     Dates: start: 20160116, end: 20160121
  19. VANCOMYCIN [Concomitant]
     Active Substance: VANCOMYCIN
     Indication: Cellulitis
     Dosage: 2 GRAM DAILY;
     Route: 042
     Dates: start: 20160116, end: 20160121

REACTIONS (1)
  - Ulcerative keratitis [Recovered/Resolved]

NARRATIVE: CASE EVENT DATE: 20171228
